FAERS Safety Report 5262772-6 (Version None)
Quarter: 2007Q1

REPORT INFORMATION
  Report Type: 
  Country: None (occurrence: None)
  Receive Date: 20070312
  Receipt Date: 20070308
  Transmission Date: 20070707
  Serious: Yes (Other)
  Sender: FDA-Public Use
  Company Number: US-GLAXOSMITHKLINE-A0642442A

PATIENT
  Age: 27 Year
  Sex: Female

DRUGS (2)
  1. PAROXETINE HYDROCHLORIDE [Suspect]
     Indication: MAJOR DEPRESSION
     Route: 065
  2. NO CONCURRENT MEDICATION [Concomitant]

REACTIONS (3)
  - ABORTION INDUCED [None]
  - DRUG DEPENDENCE [None]
  - DRUG EXPOSURE DURING PREGNANCY [None]
